FAERS Safety Report 20676285 (Version 1)
Quarter: 2022Q2

REPORT INFORMATION
  Report Type: Spontaneous
  Country: US (occurrence: US)
  Receive Date: 20220405
  Receipt Date: 20220405
  Transmission Date: 20220721
  Serious: Yes (Hospitalization)
  Sender: FDA-Public Use
  Company Number: US-JNJFOC-20220357129

PATIENT
  Sex: Female

DRUGS (1)
  1. THROMBIN HUMAN [Suspect]
     Active Substance: THROMBIN HUMAN
     Indication: Product used for unknown indication
     Route: 065

REACTIONS (1)
  - Post procedural haemorrhage [Unknown]
